FAERS Safety Report 5372093-9 (Version None)
Quarter: 2007Q2

REPORT INFORMATION
  Report Type: 
  Country: None (occurrence: None)
  Receive Date: 20070627
  Receipt Date: 20070615
  Transmission Date: 20071010
  Serious: Yes (Hospitalization)
  Sender: FDA-Public Use
  Company Number: CH-ROCHE-502821

PATIENT
  Age: 83 Year
  Sex: Male

DRUGS (8)
  1. TORSEMIDE [Suspect]
     Indication: ESSENTIAL HYPERTENSION
     Route: 048
  2. ALDACTONE [Suspect]
     Indication: ESSENTIAL HYPERTENSION
     Route: 048
  3. ZESTRIL [Suspect]
     Indication: ESSENTIAL HYPERTENSION
     Route: 048
  4. SINTROM [Concomitant]
     Indication: ATRIAL FIBRILLATION
     Route: 048
  5. CARVEDILOL [Concomitant]
     Indication: ATRIAL FIBRILLATION
     Route: 048
  6. CORDARONE [Concomitant]
     Indication: ATRIAL FIBRILLATION
     Route: 048
  7. FOLIC ACID [Concomitant]
     Route: 048
  8. ALLOPURINOL [Concomitant]
     Route: 048

REACTIONS (6)
  - BLOOD POTASSIUM INCREASED [None]
  - CARDIOGENIC SHOCK [None]
  - HYPONATRAEMIA [None]
  - HYPOTENSION [None]
  - RENAL FAILURE ACUTE [None]
  - TACHYCARDIA [None]
